FAERS Safety Report 6055590-2 (Version None)
Quarter: 2009Q1

REPORT INFORMATION
  Report Type: 
  Country: None (occurrence: None)
  Receive Date: 20090128
  Receipt Date: 20090122
  Transmission Date: 20090719
  Serious: Yes (Hospitalization)
  Sender: FDA-Public Use
  Company Number: US-JNJFOC-20090106178

PATIENT
  Sex: Female
  Weight: 52.16 kg

DRUGS (5)
  1. DURAGESIC-100 [Suspect]
     Indication: PAIN
     Dosage: DOSE: USED ONE 100 UG/HR AND ONE 50 UG/HR PATCH TO MAKE A TOTAL OF 150 UG/HR
     Route: 062
  2. UNSPECIFIED MEDICATION [Suspect]
     Indication: HYPERTENSION
     Route: 065
  3. ATENOLOL [Concomitant]
     Indication: HYPERTENSION
     Route: 065
  4. BENICAR [Concomitant]
     Indication: HYPERTENSION
     Route: 048
  5. CLONIDINE [Concomitant]
     Indication: HYPERTENSION
     Route: 065

REACTIONS (13)
  - DEVICE LEAKAGE [None]
  - DRUG DOSE OMISSION [None]
  - DYSKINESIA [None]
  - DYSPNOEA [None]
  - HEADACHE [None]
  - INCISION SITE COMPLICATION [None]
  - MALAISE [None]
  - OOPHORECTOMY [None]
  - SKIN DISCOLOURATION [None]
  - TREMOR [None]
  - VOMITING [None]
  - WEIGHT FLUCTUATION [None]
  - WITHDRAWAL SYNDROME [None]
